FAERS Safety Report 6098257-7 (Version None)
Quarter: 2009Q1

REPORT INFORMATION
  Report Type: 
  Country: None (occurrence: None)
  Receive Date: 20090227
  Receipt Date: 20090225
  Transmission Date: 20090719
  Serious: Yes (Hospitalization, Other)
  Sender: FDA-Public Use
  Company Number: US-MERCK-0902USA04274

PATIENT
  Sex: Female

DRUGS (1)
  1. FOSAMAX [Suspect]
     Indication: OSTEOPOROSIS
     Route: 048
     Dates: start: 20010101

REACTIONS (5)
  - BACTERIAL TOXAEMIA [None]
  - GINGIVAL INFECTION [None]
  - OSTEONECROSIS [None]
  - THYROID CANCER [None]
  - TOOTH LOSS [None]
